FAERS Safety Report 9562159 (Version 1)
Quarter: 2013Q3

REPORT INFORMATION
  Report Type: Spontaneous
  Country: US (occurrence: US)
  Receive Date: 20130927
  Receipt Date: 20130927
  Transmission Date: 20140515
  Serious: No
  Sender: FDA-Public Use
  Company Number: US-PFIZER INC-2013275433

PATIENT
  Sex: Female
  Weight: 132 kg

DRUGS (6)
  1. ZITHROMAX [Suspect]
     Dosage: UNK
  2. NAPROXEN SODIUM [Suspect]
     Dosage: UNK
  3. METFORMIN [Suspect]
     Dosage: UNK
  4. OXYBUTYNIN [Suspect]
  5. CYMBALTA [Suspect]
     Dosage: UNK
  6. CEPHALEXIN [Suspect]

REACTIONS (1)
  - Drug hypersensitivity [Unknown]
